FAERS Safety Report 5626985-3 (Version None)
Quarter: 2008Q1

REPORT INFORMATION
  Report Type: 
  Country: None (occurrence: None)
  Receive Date: 20080130
  Receipt Date: 20080130
  Transmission Date: 20080703
  Serious: Yes (Other)
  Sender: FDA-Public Use
  Company Number: HQWYE778115MAR07

PATIENT
  Age: 64 Year
  Sex: Female
  Weight: 62.65 kg

DRUGS (15)
  1. CORDARONE [Suspect]
     Indication: ATRIAL FIBRILLATION
     Dosage: 200 QD, ORAL
     Route: 048
     Dates: start: 20010101
  2. LISINOPRIL [Concomitant]
  3. DIGOXIN [Concomitant]
  4. HYZAAR (HYDROCHLORTHIAZIDE/LOSARTAN POTASSIUM) [Concomitant]
  5. PROTONIX [Concomitant]
  6. TIAZAC [Concomitant]
  7. LASIX [Concomitant]
  8. POTASSIUM CHLORIDE [Concomitant]
  9. CALCIUM WITH VITAMIN D (CALCIUM PHOSPHATE/CALCIUM SODIUM LACTATE/ERGOC [Concomitant]
  10. THYROID TAB [Concomitant]
  11. OMACOR (OMEGA-3 POLYUNSATURATED FATTY ACIDS) [Concomitant]
  12. COUMADIN [Concomitant]
  13. FERROUS SULPHATE (FERROUS SULFATE) [Concomitant]
  14. XANAX [Concomitant]
  15. ZETIA [Concomitant]

REACTIONS (4)
  - ALOPECIA [None]
  - DEPOSIT EYE [None]
  - LUNG INFECTION [None]
  - PARAESTHESIA [None]
